FAERS Safety Report 20018533 (Version 1)
Quarter: 2021Q4

REPORT INFORMATION
  Report Type: Report from Study
  Country: BR (occurrence: BR)
  Receive Date: 20211101
  Receipt Date: 20211101
  Transmission Date: 20220303
  Serious: Yes (Hospitalization, Other)
  Sender: FDA-Public Use
  Company Number: BR-AMGEN-BRASL2021089227

PATIENT
  Age: 80 Year
  Sex: Male

DRUGS (1)
  1. VECTIBIX [Suspect]
     Active Substance: PANITUMUMAB
     Indication: Neoplasm malignant
     Dosage: UNK  EVERY 15 DAYS
     Route: 065
     Dates: start: 20210414

REACTIONS (8)
  - Arrhythmia [Recovering/Resolving]
  - Skin irritation [Recovering/Resolving]
  - Wound [Recovering/Resolving]
  - Tongue ulceration [Recovering/Resolving]
  - Dry skin [Recovering/Resolving]
  - Pruritus [Recovering/Resolving]
  - Peripheral swelling [Recovering/Resolving]
  - Fatigue [Recovering/Resolving]

NARRATIVE: CASE EVENT DATE: 20210101
